FAERS Safety Report 6235025-7 (Version None)
Quarter: 2009Q2

REPORT INFORMATION
  Report Type: 
  Country: None (occurrence: None)
  Receive Date: 20090617
  Receipt Date: 20071001
  Transmission Date: 20091009
  Serious: No
  Sender: FDA-Public Use
  Company Number: 268226

PATIENT
  Age: 77 Year
  Sex: Male

DRUGS (3)
  1. LEVEMIR [Suspect]
     Indication: DIABETES MELLITUS
     Dosage: 20 LU, QD, SUBCUTANEOUS
     Route: 058
     Dates: start: 20070903
  2. STARLIX [Concomitant]
  3. BYETTA (EXENATIDE, EXENATIDE) [Concomitant]

REACTIONS (1)
  - GASTROINTESTINAL HYPERMOTILITY [None]
